FAERS Safety Report 9354598 (Version 2)
Quarter: 2013Q3

REPORT INFORMATION
  Report Type: Spontaneous
  Country: US (occurrence: US)
  Receive Date: 20130618
  Receipt Date: 20130702
  Transmission Date: 20140515
  Serious: Yes (Hospitalization, Other)
  Sender: FDA-Public Use
  Company Number: GXBR2013US001215

PATIENT
  Age: 67 Year
  Sex: Female
  Weight: 93.42 kg

DRUGS (4)
  1. CLONIDINE HCL TABLETS USP [Suspect]
     Indication: HYPERTENSION
     Dosage: 150 UG, QD
  2. NORVASC [Suspect]
     Indication: HYPERTENSION
     Dosage: 5 MG, QD
  3. LYRICA [Suspect]
     Indication: FIBROMYALGIA
     Dosage: 100 MG, BID
     Dates: start: 201106
  4. INSULIN [Concomitant]
     Indication: DIABETES MELLITUS
     Dosage: UNK

REACTIONS (7)
  - Pneumonia [Unknown]
  - Pleurisy [Unknown]
  - Cardiac failure congestive [Unknown]
  - Pharyngeal oedema [Not Recovered/Not Resolved]
  - Blood pressure increased [Unknown]
  - Drug ineffective [Unknown]
  - Incorrect dose administered [Unknown]
